FAERS Safety Report 9667934 (Version 1)
Quarter: 2013Q4

REPORT INFORMATION
  Report Type: Spontaneous
  Country: IT (occurrence: IT)
  Receive Date: 20131104
  Receipt Date: 20131104
  Transmission Date: 20140711
  Serious: Yes (Other)
  Sender: FDA-Public Use
  Company Number: IT-VERTEX PHARMACEUTICALS INC-2013-010828

PATIENT
  Age: 47 Year
  Sex: Male

DRUGS (3)
  1. INCIVO [Suspect]
     Indication: CHRONIC HEPATITIS C
     Dosage: 2250 MG, QD
     Dates: start: 20130502, end: 20130612
  2. PEGASYS [Concomitant]
     Dosage: 180 ?G, UNK
     Dates: start: 20130502, end: 20131025
  3. COPEGUS [Concomitant]
     Dates: start: 20130502, end: 20131025

REACTIONS (1)
  - Rash [Recovered/Resolved]
